FAERS Safety Report 8044323-6 (Version None)
Quarter: 2012Q1

REPORT INFORMATION
  Report Type: 
  Country: None (occurrence: None)
  Receive Date: 20120111
  Receipt Date: 20120111
  Transmission Date: 20120608
  Serious: Yes (Hospitalization)
  Sender: FDA-Public Use
  Company Number: None

PATIENT
  Age: 87 Year
  Sex: Female
  Weight: 65.5 kg

DRUGS (15)
  1. FLOVENT [Concomitant]
  2. COLACE [Concomitant]
  3. MULTI-VITAMIN [Concomitant]
  4. FLONASE [Concomitant]
  5. ALBUTEROL [Concomitant]
  6. VITAMIN D [Concomitant]
  7. CITALOPRAM HYDROBROMIDE [Suspect]
     Indication: MAJOR DEPRESSION
     Dosage: 20 MG DAILY BY MOUTH { 1 YEAR
     Route: 048
     Dates: end: 20111229
  8. PROTONIX [Concomitant]
  9. PROTONIX [Concomitant]
  10. ESTRACE [Concomitant]
  11. CALCIUM [Concomitant]
  12. LANTUS [Concomitant]
  13. PLAVIX [Concomitant]
  14. ASPIRIN [Concomitant]
  15. PATANOL [Concomitant]

REACTIONS (1)
  - CHOREOATHETOSIS [None]
